FAERS Safety Report 7009133-7 (Version None)
Quarter: 2010Q3

REPORT INFORMATION
  Report Type: 
  Country: None (occurrence: None)
  Receive Date: 20100921
  Receipt Date: 20100909
  Transmission Date: 20110219
  Serious: Yes (Other)
  Sender: FDA-Public Use
  Company Number: 2010SP048604

PATIENT
  Age: 27 Year
  Sex: Female

DRUGS (7)
  1. IMPLANON [Suspect]
     Indication: CONTRACEPTION
     Dosage: 68 MG;SBDE
     Route: 059
     Dates: start: 20100626
  2. TEGRETOL [Concomitant]
  3. VICODIN [Concomitant]
  4. VALIUM [Concomitant]
  5. DIASTAT [Concomitant]
  6. PAXIL [Concomitant]
  7. SEROQUEL [Concomitant]

REACTIONS (6)
  - ABDOMINAL PAIN [None]
  - CONVULSION [None]
  - DRUG INTERACTION [None]
  - ECTOPIC PREGNANCY [None]
  - MENORRHAGIA [None]
  - PREGNANCY WITH IMPLANT CONTRACEPTIVE [None]
